FAERS Safety Report 17661716 (Version 1)
Quarter: 2020Q2

REPORT INFORMATION
  Report Type: Spontaneous
  Country: US (occurrence: US)
  Receive Date: 20200410
  Receipt Date: 20200410
  Transmission Date: 20200713
  Serious: No
  Sender: FDA-Public Use
  Company Number: None

PATIENT
  Sex: Female

DRUGS (1)
  1. REPATHA [Suspect]
     Active Substance: EVOLOCUMAB
     Indication: HYPERLIPIDAEMIA
     Dosage: ?          OTHER DOSE:1 PEN;?
     Route: 058
     Dates: start: 20200121

REACTIONS (7)
  - Therapy interrupted [None]
  - Product distribution issue [None]
  - Post procedural infection [None]
  - Incision site erythema [None]
  - Localised infection [None]
  - Knee arthroplasty [None]
  - Incision site swelling [None]
